FAERS Safety Report 20263496 (Version 1)
Quarter: 2021Q4

REPORT INFORMATION
  Report Type: Spontaneous
  Country: US (occurrence: US)
  Receive Date: 20211231
  Receipt Date: 20211231
  Transmission Date: 20220303
  Serious: No
  Sender: FDA-Public Use
  Company Number: US-CELGENE-USA-20211208464

PATIENT
  Sex: Female
  Weight: 197.94 kg

DRUGS (1)
  1. REVLIMID [Suspect]
     Active Substance: LENALIDOMIDE
     Indication: Plasma cell myeloma
     Dosage: 3.75 MILLIGRAM
     Route: 048
     Dates: start: 20210830

REACTIONS (1)
  - Diarrhoea [Recovering/Resolving]
